FAERS Safety Report 16667295 (Version 2)
Quarter: 2019Q3

REPORT INFORMATION
  Report Type: Spontaneous
  Country: AT (occurrence: AT)
  Receive Date: 20190805
  Receipt Date: 20190812
  Transmission Date: 20191004
  Serious: Yes (Other)
  Sender: FDA-Public Use
  Company Number: AT-ACTELION-A-CH2019-193695

PATIENT
  Age: 77 Year
  Sex: Female
  Weight: 62 kg

DRUGS (13)
  1. RISPERDAL [Suspect]
     Active Substance: RISPERIDONE
     Indication: PRODUCT USED FOR UNKNOWN INDICATION
     Dosage: 0.5 MG, PRN
     Route: 065
  2. CONCOR [Concomitant]
     Active Substance: BISOPROLOL FUMARATE
     Route: 048
  3. TEMESTA [Concomitant]
     Dosage: 1/2 AMPULLE BIS 2X T?GL BEI STARKER UNRUHE
     Route: 042
  4. DOBUTAMIN [Concomitant]
     Active Substance: DOBUTAMINE HYDROCHLORIDE
     Dosage: 250MG/50ML NACL 0,9% (2,7ML/H)
     Route: 042
  5. OPSUMIT [Suspect]
     Active Substance: MACITENTAN
     Indication: PULMONARY HYPERTENSION
     Dosage: 10 MG, QD
     Route: 048
  6. ENOXAPARIN [Concomitant]
     Active Substance: ENOXAPARIN
     Dosage: 800 IU, QD
  7. LASIX [Concomitant]
     Active Substance: FUROSEMIDE
     Dosage: 500MG/50ML NACL 0,9% (0,5ML/H)
     Route: 042
  8. AQUAPHORIL [Concomitant]
     Active Substance: XIPAMIDE
     Route: 048
  9. ADEMPAS [Concomitant]
     Active Substance: RIOCIGUAT
     Route: 048
  10. LORAZEPAM. [Concomitant]
     Active Substance: LORAZEPAM
  11. THIAMAZOL [Suspect]
     Active Substance: METHIMAZOLE
     Indication: PRODUCT USED FOR UNKNOWN INDICATION
     Dosage: UNK
     Route: 048
  12. PASSEDAN-NERVENTROPFEN [Suspect]
     Active Substance: HERBALS
     Indication: PRODUCT USED FOR UNKNOWN INDICATION
     Dosage: 15 DORPS TO SLEEP
     Route: 048
  13. SEROQUEL [Suspect]
     Active Substance: QUETIAPINE FUMARATE
     Indication: PRODUCT USED FOR UNKNOWN INDICATION
     Dosage: 25MG AS NEEDED UP TO 4 TIMES A DAY MAX
     Route: 048

REACTIONS (1)
  - Pancytopenia [Unknown]

NARRATIVE: CASE EVENT DATE: 20190710
